FAERS Safety Report 4597575-9 (Version None)
Quarter: 2005Q1

REPORT INFORMATION
  Report Type: 
  Country: None (occurrence: None)
  Receive Date: 20050228
  Receipt Date: 20050228
  Transmission Date: 20050727
  Serious: Yes (Hospitalization, Other)
  Sender: FDA-Public Use
  Company Number: None

PATIENT
  Sex: Female
  Weight: 60.3284 kg

DRUGS (4)
  1. ZOLOFT [Suspect]
     Indication: ANXIETY
     Dosage: 50MG  ONCE A DAY ORAL
     Route: 048
     Dates: start: 20040813, end: 20040922
  2. ZOLOFT [Suspect]
     Indication: DEPRESSION
     Dosage: 50MG  ONCE A DAY ORAL
     Route: 048
     Dates: start: 20040813, end: 20040922
  3. LORAZEPAM [Suspect]
     Indication: ANXIETY
     Dosage: 1MG  AS NEEDED ORAL
     Route: 048
     Dates: start: 20040826, end: 20040916
  4. LORAZEPAM [Suspect]
     Indication: PANIC ATTACK
     Dosage: 1MG  AS NEEDED ORAL
     Route: 048
     Dates: start: 20040826, end: 20040916

REACTIONS (38)
  - ABNORMAL BEHAVIOUR [None]
  - ABNORMAL FAECES [None]
  - AGITATION [None]
  - ALCOHOL USE [None]
  - AMNESIA [None]
  - ANGER [None]
  - ANXIETY [None]
  - BIPOLAR DISORDER [None]
  - CIRCULATORY COLLAPSE [None]
  - COUGH [None]
  - DELUSION [None]
  - DEPRESSED LEVEL OF CONSCIOUSNESS [None]
  - DEPRESSION [None]
  - DIVORCED [None]
  - DIZZINESS [None]
  - DRUG WITHDRAWAL SYNDROME [None]
  - DYSPEPSIA [None]
  - EUPHORIC MOOD [None]
  - FATIGUE [None]
  - FEELING ABNORMAL [None]
  - HAEMATOCHEZIA [None]
  - HOSTILITY [None]
  - HYPOAESTHESIA [None]
  - LABYRINTHITIS [None]
  - MANIA [None]
  - MEMORY IMPAIRMENT [None]
  - MENORRHAGIA [None]
  - MENSTRUAL DISORDER [None]
  - PANIC REACTION [None]
  - PARANOIA [None]
  - PERSONALITY CHANGE [None]
  - PREMENSTRUAL SYNDROME [None]
  - SOMNOLENCE [None]
  - THINKING ABNORMAL [None]
  - TIC [None]
  - VERTIGO [None]
  - WEIGHT DECREASED [None]
  - YAWNING [None]
